FAERS Safety Report 6108587-8 (Version None)
Quarter: 2009Q1

REPORT INFORMATION
  Report Type: 
  Country: None (occurrence: None)
  Receive Date: 20090305
  Receipt Date: 20090219
  Transmission Date: 20090719
  Serious: Yes (Hospitalization)
  Sender: FDA-Public Use
  Company Number: 1000004990

PATIENT
  Age: 86 Year
  Sex: Male

DRUGS (7)
  1. MEMANTINE HCL [Suspect]
     Dosage: ORAL
     Route: 048
  2. REMINYL [Suspect]
     Dosage: ORAL
     Route: 048
  3. RISPERDAL [Concomitant]
  4. DEROXAT [Concomitant]
  5. FORLAX [Concomitant]
  6. LASIX [Concomitant]
  7. LOVENOX [Concomitant]

REACTIONS (8)
  - BRADYCARDIA [None]
  - DYSPNOEA [None]
  - ELECTROCARDIOGRAM QT PROLONGED [None]
  - GENERAL PHYSICAL HEALTH DETERIORATION [None]
  - HYPERTENSION [None]
  - MALAISE [None]
  - PO2 DECREASED [None]
  - RENAL FAILURE [None]
